FAERS Safety Report 11564986 (Version 3)
Quarter: 2017Q1

REPORT INFORMATION
  Report Type: Report from Study
  Country: US (occurrence: US)
  Receive Date: 20150928
  Receipt Date: 20170201
  Transmission Date: 20170428
  Serious: No
  Sender: FDA-Public Use
  Company Number: US-EXELIXIS-CABO-14004902

PATIENT
  Sex: Female

DRUGS (14)
  1. COMETRIQ [Suspect]
     Active Substance: CABOZANTINIB S-MALATE
     Indication: GASTRIC CANCER
     Dosage: 100 MG, QD
     Route: 048
     Dates: start: 20141104, end: 20141105
  2. COMETRIQ [Suspect]
     Active Substance: CABOZANTINIB S-MALATE
     Dosage: 80 MG, QD
     Route: 048
     Dates: start: 201605, end: 2016
  3. COMETRIQ [Suspect]
     Active Substance: CABOZANTINIB S-MALATE
     Indication: THYROID CANCER
     Dosage: 140 MG, QD
     Route: 048
     Dates: start: 20141020, end: 20141026
  4. COMETRIQ [Suspect]
     Active Substance: CABOZANTINIB S-MALATE
     Dosage: 100 MG, QD
     Route: 048
     Dates: start: 201507, end: 20151026
  5. COMETRIQ [Suspect]
     Active Substance: CABOZANTINIB S-MALATE
     Dosage: 80 MG, QOD
     Route: 048
     Dates: start: 201606
  6. OMEPRAZOLE. [Concomitant]
     Active Substance: OMEPRAZOLE
  7. LEVOTHYROXINE. [Concomitant]
     Active Substance: LEVOTHYROXINE
  8. LISINOPRIL. [Concomitant]
     Active Substance: LISINOPRIL
  9. COMETRIQ [Suspect]
     Active Substance: CABOZANTINIB S-MALATE
     Dosage: 100 MG, QD
     Route: 048
     Dates: start: 201511
  10. VIT B 12 [Concomitant]
  11. COMETRIQ [Suspect]
     Active Substance: CABOZANTINIB S-MALATE
     Dosage: 100 MG, EVERY OTHER DAY
     Route: 048
     Dates: start: 20141215
  12. COMETRIQ [Suspect]
     Active Substance: CABOZANTINIB S-MALATE
     Dosage: 80 MG, QOD
     Route: 048
     Dates: start: 20150529
  13. LOSARTAN. [Concomitant]
     Active Substance: LOSARTAN
  14. AMLODIPINE [Concomitant]
     Active Substance: AMLODIPINE BESYLATE

REACTIONS (43)
  - Fatigue [Not Recovered/Not Resolved]
  - Balance disorder [Not Recovered/Not Resolved]
  - Increased tendency to bruise [Unknown]
  - Blood pressure abnormal [Unknown]
  - Dyspepsia [Recovered/Resolved]
  - Pharyngeal oedema [Unknown]
  - Weight decreased [Not Recovered/Not Resolved]
  - Oropharyngeal pain [Unknown]
  - Vomiting [Not Recovered/Not Resolved]
  - Dry skin [Unknown]
  - Stomatitis [Unknown]
  - Asthenia [Unknown]
  - Blood pressure increased [Not Recovered/Not Resolved]
  - Vascular malformation [Unknown]
  - Cough [Not Recovered/Not Resolved]
  - Productive cough [Unknown]
  - Decreased appetite [Unknown]
  - Dysphagia [Unknown]
  - Tooth discolouration [Unknown]
  - Scab [Unknown]
  - Pain in extremity [Unknown]
  - Skin ulcer [Unknown]
  - Foreign body [Unknown]
  - Adverse drug reaction [Unknown]
  - Pain of skin [Unknown]
  - Malaise [Unknown]
  - Glossodynia [Unknown]
  - Alopecia [Unknown]
  - Diarrhoea [Not Recovered/Not Resolved]
  - Abdominal pain upper [Not Recovered/Not Resolved]
  - Feeling abnormal [Unknown]
  - Skin sensitisation [Unknown]
  - Insomnia [Unknown]
  - Acne [Unknown]
  - Musculoskeletal pain [Unknown]
  - Tongue ulceration [Unknown]
  - Rash [Unknown]
  - Epistaxis [Not Recovered/Not Resolved]
  - Skin atrophy [Unknown]
  - Blister [Not Recovered/Not Resolved]
  - Abasia [Unknown]
  - Constipation [Unknown]
  - Dizziness [Unknown]
